FAERS Safety Report 5387233-5 (Version None)
Quarter: 2007Q3

REPORT INFORMATION
  Report Type: 
  Country: None (occurrence: None)
  Receive Date: 20070716
  Receipt Date: 20070704
  Transmission Date: 20080115
  Serious: Yes (Other)
  Sender: FDA-Public Use
  Company Number: PHBS2007BR11285

PATIENT
  Age: 38 Year
  Sex: Male
  Weight: 50 kg

DRUGS (3)
  1. ZELMAC [Suspect]
     Indication: IRRITABLE BOWEL SYNDROME
     Dosage: UNK, UNK
     Route: 048
     Dates: start: 20060301
  2. ZELMAC [Suspect]
     Dosage: 6 MG, BID
     Route: 048
     Dates: start: 20070630
  3. ZELMAC [Suspect]
     Dosage: 6 MG, QD
     Route: 048

REACTIONS (12)
  - BLOOD PRESSURE INCREASED [None]
  - DIARRHOEA [None]
  - DIZZINESS [None]
  - FEELING ABNORMAL [None]
  - FEELING COLD [None]
  - GASTROINTESTINAL MOTILITY DISORDER [None]
  - HYPERHIDROSIS [None]
  - LIP SWELLING [None]
  - PARAESTHESIA [None]
  - SWELLING [None]
  - TACHYCARDIA [None]
  - TREMOR [None]
